FAERS Safety Report 19463458 (Version 2)
Quarter: 2021Q2

REPORT INFORMATION
  Report Type: Spontaneous
  Country: JP (occurrence: JP)
  Receive Date: 20210625
  Receipt Date: 20210630
  Transmission Date: 20210717
  Serious: Yes (Death, Other)
  Sender: FDA-Public Use
  Company Number: JP-PFIZER INC-2021690909

PATIENT
  Age: 87 Year
  Sex: Male

DRUGS (2)
  1. LEVOFLOXACIN. [Suspect]
     Active Substance: LEVOFLOXACIN
     Dosage: 500 MG
     Dates: start: 20210610
  2. COMIRNATY [Suspect]
     Active Substance: TOZINAMERAN
     Indication: COVID-19 IMMUNISATION
     Dosage: DOSE 1, SINGLE
     Dates: start: 20210608, end: 20210608

REACTIONS (2)
  - Cardio-respiratory arrest [Fatal]
  - Pyrexia [Unknown]

NARRATIVE: CASE EVENT DATE: 20210609
